FAERS Safety Report 9525998 (Version 2)
Quarter: 2013Q4

REPORT INFORMATION
  Report Type: Spontaneous
  Country: US (occurrence: US)
  Receive Date: 20130916
  Receipt Date: 20131101
  Transmission Date: 20140711
  Serious: No
  Sender: FDA-Public Use
  Company Number: US-B.I. PHARMACEUTICALS,INC./RIDGEFIELD-2013-BI-27367BP

PATIENT
  Age: 92 Year
  Sex: Female
  Weight: 73 kg

DRUGS (5)
  1. SPIRIVA [Suspect]
     Indication: CHRONIC OBSTRUCTIVE PULMONARY DISEASE
     Dosage: 18 MCG
     Route: 055
     Dates: start: 20130829
  2. LEVOFLOXACIN [Concomitant]
     Indication: BRONCHITIS
     Dosage: 500 MG
     Route: 048
     Dates: start: 20130829
  3. LASIX [Concomitant]
     Indication: PULMONARY OEDEMA
     Dosage: 40 MG
     Route: 048
     Dates: start: 2011
  4. ALBUTEROL [Concomitant]
     Indication: BRONCHITIS
     Dosage: FORMULATION : (INHALATION AEROSOL)
     Route: 055
     Dates: start: 20130829
  5. ORENCIA [Concomitant]
     Indication: RHEUMATOID ARTHRITIS
     Dosage: FORMULATION : (INTRAVENOUS)
     Route: 042
     Dates: start: 2011

REACTIONS (2)
  - Dyspnoea [Not Recovered/Not Resolved]
  - Product quality issue [Not Recovered/Not Resolved]
